FAERS Safety Report 25665733 (Version 2)
Quarter: 2025Q3

REPORT INFORMATION
  Report Type: Report from Study
  Country: BR (occurrence: BR)
  Receive Date: 20250811
  Receipt Date: 20250813
  Transmission Date: 20251021
  Serious: Yes (Life-Threatening, Hospitalization, Other)
  Sender: NOVARTIS
  Company Number: BR-002147023-NVSC2025BR108851

PATIENT
  Age: 53 Year
  Sex: Female

DRUGS (2)
  1. KYMRIAH [Suspect]
     Active Substance: TISAGENLECLEUCEL
     Indication: Diffuse large B-cell lymphoma
     Route: 042
     Dates: start: 20230307, end: 20230307
  2. VANCOMYCIN [Concomitant]
     Active Substance: VANCOMYCIN
     Indication: Product used for unknown indication
     Route: 065
     Dates: start: 20230310, end: 20230312

REACTIONS (29)
  - Cytokine release syndrome [Recovered/Resolved]
  - Hypotension [Recovered/Resolved]
  - Pyrexia [Recovered/Resolved]
  - COVID-19 [Recovered/Resolved]
  - Oropharyngeal pain [Recovered/Resolved]
  - Rhinitis [Recovered/Resolved]
  - Nasal obstruction [Recovered/Resolved]
  - Cough [Recovered/Resolved]
  - Asthenia [Recovered/Resolved]
  - Hypotension [Recovered/Resolved]
  - Pyrexia [Recovered/Resolved]
  - Pyrexia [Recovered/Resolved]
  - Productive cough [Recovered/Resolved]
  - Hypotension [Recovered/Resolved]
  - Bradypnoea [Recovered/Resolved]
  - Head discomfort [Recovered/Resolved]
  - Somnolence [Recovered/Resolved]
  - Immune effector cell-associated neurotoxicity syndrome [Recovered/Resolved]
  - Post-acute COVID-19 syndrome [Recovered/Resolved]
  - Influenza like illness [Recovered/Resolved]
  - Influenza like illness [Recovered/Resolved]
  - Somnolence [Recovered/Resolved]
  - Pruritus [Recovered/Resolved]
  - Visual impairment [Recovered/Resolved]
  - Erythema [Recovered/Resolved]
  - Erythema [Recovered/Resolved]
  - Osteoarthritis [Recovered/Resolved]
  - Chills [Recovered/Resolved]
  - Tendon disorder [Recovered/Resolved]

NARRATIVE: CASE EVENT DATE: 20230307
